FAERS Safety Report 7564397-6 (Version None)
Quarter: 2011Q2

REPORT INFORMATION
  Report Type: 
  Country: None (occurrence: None)
  Receive Date: 20110622
  Receipt Date: 20110609
  Transmission Date: 20111010
  Serious: Yes (Other)
  Sender: FDA-Public Use
  Company Number: PHHY2011JP51437

PATIENT
  Sex: Female
  Weight: 49 kg

DRUGS (8)
  1. AMARYL [Concomitant]
     Dosage: 3 MG, UNK
     Route: 048
     Dates: start: 20090623, end: 20110607
  2. CAMOSTAT MESILATE [Concomitant]
     Dosage: 300 MG, UNK
     Route: 048
     Dates: start: 20070501, end: 20110607
  3. PRAVASTATIN SODIUM [Concomitant]
     Dosage: 10 MG, UNK
     Route: 048
     Dates: start: 20080805, end: 20110607
  4. DIOVAN HCT [Suspect]
     Indication: HYPERTENSION
     Dosage: 1 DF (VALSARTAN/HYDROCHLOROTHIAZIDE)DAILY
     Route: 048
     Dates: start: 20100413, end: 20110321
  5. AMLODIPINE [Concomitant]
     Indication: HYPERTENSION
     Dosage: 5 MG, UNK
     Route: 048
     Dates: start: 20081028, end: 20110321
  6. EVISTA [Concomitant]
     Dosage: 60 MG, UNK
     Route: 048
     Dates: start: 20050425, end: 20110607
  7. LANDEL [Concomitant]
     Indication: HYPERTENSION
     Dosage: 20 MG, UNK
     Route: 048
     Dates: start: 20101130, end: 20110321
  8. CILNIDIPINE [Concomitant]
     Indication: HYPERTENSION
     Dosage: 20 MG, UNK
     Route: 048
     Dates: start: 20110322, end: 20110607

REACTIONS (5)
  - COUGH [None]
  - BLOOD GLUCOSE INCREASED [None]
  - BLOOD PRESSURE DIASTOLIC DECREASED [None]
  - HYPERKALAEMIA [None]
  - GLYCOSYLATED HAEMOGLOBIN INCREASED [None]
